FAERS Safety Report 21416422 (Version 1)
Quarter: 2022Q4

REPORT INFORMATION
  Report Type: Spontaneous
  Country: DE (occurrence: DE)
  Receive Date: 20221006
  Receipt Date: 20221006
  Transmission Date: 20230113
  Serious: Yes (Hospitalization)
  Sender: FDA-Public Use
  Company Number: DE-ADRED-08120-01

PATIENT
  Age: 59 Year
  Sex: Male

DRUGS (5)
  1. TELMISARTAN [Suspect]
     Active Substance: TELMISARTAN
     Dosage: 40 MG, 0-0-1-0
     Route: 048
  2. IBUPROFEN [Suspect]
     Active Substance: IBUPROFEN
     Dosage: IF NECESSARY
     Route: 048
  3. EPLERENONE [Suspect]
     Active Substance: EPLERENONE
     Dosage: 25 MG, 1-0-0-0
     Route: 048
  4. METOPROLOL [Concomitant]
     Active Substance: METOPROLOL
     Dosage: 47.5 MG, 1-0-1-0
     Route: 048
  5. LEVOTHYROXINE [Concomitant]
     Active Substance: LEVOTHYROXINE
     Dosage: 200 MICROGRAM, 2-0-0-0
     Route: 048

REACTIONS (6)
  - Musculoskeletal stiffness [Unknown]
  - Gout [Unknown]
  - Arthralgia [Unknown]
  - Acute kidney injury [Unknown]
  - Arthralgia [Unknown]
  - Arthralgia [Unknown]
